FAERS Safety Report 19239847 (Version 1)
Quarter: 2021Q2

REPORT INFORMATION
  Report Type: Spontaneous
  Country: GB (occurrence: GB)
  Receive Date: 20210511
  Receipt Date: 20210511
  Transmission Date: 20210717
  Serious: Yes (Other)
  Sender: FDA-Public Use
  Company Number: GB-AUROBINDO-AUR-APL-2021-018793

PATIENT
  Sex: Male

DRUGS (1)
  1. RISPERIDONE 0.5MG [Suspect]
     Active Substance: RISPERIDONE
     Indication: PRODUCT USED FOR UNKNOWN INDICATION
     Dosage: STRENGTH?0.5 MG
     Route: 065

REACTIONS (2)
  - Mood altered [Unknown]
  - Intentional self-injury [Unknown]
